FAERS Safety Report 14196902 (Version 1)
Quarter: 2017Q4

REPORT INFORMATION
  Report Type: Spontaneous
  Country: US (occurrence: US)
  Receive Date: 20171116
  Receipt Date: 20171116
  Transmission Date: 20180321
  Serious: Yes (Hospitalization, Other)
  Sender: FDA-Public Use
  Company Number: US-GLAXOSMITHKLINE-US2017GSK176063

PATIENT
  Sex: Male

DRUGS (1)
  1. SORIATANE [Suspect]
     Active Substance: ACITRETIN
     Indication: NEOPLASM MALIGNANT
     Dosage: 10 MG, UNK
     Dates: start: 20170101

REACTIONS (2)
  - Neoplasm [Unknown]
  - Tumour excision [Unknown]
